FAERS Safety Report 24416373 (Version 3)
Quarter: 2025Q1

REPORT INFORMATION
  Report Type: Spontaneous
  Country: JP (occurrence: JP)
  Receive Date: 20241009
  Receipt Date: 20250129
  Transmission Date: 20250409
  Serious: Yes (Other)
  Sender: PFIZER
  Company Number: JP-ONO-2024JP020508

PATIENT
  Age: 76 Year
  Sex: Male

DRUGS (2)
  1. BRAFTOVI [Suspect]
     Active Substance: ENCORAFENIB
     Indication: Thyroid cancer
     Route: 048
     Dates: start: 20240930
  2. MEKTOVI [Suspect]
     Active Substance: BINIMETINIB
     Indication: Thyroid cancer
     Route: 048
     Dates: start: 20240930

REACTIONS (8)
  - Serous retinal detachment [Unknown]
  - Macular oedema [Unknown]
  - Glomerular filtration rate abnormal [Unknown]
  - Nervousness [Unknown]
  - Blood creatinine increased [Unknown]
  - Blood creatine phosphokinase increased [Unknown]
  - Pollakiuria [Unknown]
  - Erythema [Unknown]

NARRATIVE: CASE EVENT DATE: 20241001
